FAERS Safety Report 5768464-9 (Version None)
Quarter: 2008Q2

REPORT INFORMATION
  Report Type: 
  Country: None (occurrence: None)
  Receive Date: 20080612
  Receipt Date: 20080604
  Transmission Date: 20081010
  Serious: Yes (Hospitalization)
  Sender: FDA-Public Use
  Company Number: NL-AMGEN-US286084

PATIENT
  Sex: Female

DRUGS (2)
  1. ENBREL [Suspect]
     Indication: PSORIASIS
     Dates: start: 20080401
  2. DOMPERIDONE [Suspect]
     Indication: GASTROENTERITIS
     Dosage: UNK
     Route: 065
     Dates: start: 20080501

REACTIONS (8)
  - BLOOD CREATINE PHOSPHOKINASE INCREASED [None]
  - ERYTHEMA [None]
  - GASTROENTERITIS [None]
  - HYPOTHYROIDISM [None]
  - PYREXIA [None]
  - SWELLING FACE [None]
  - TACHYPNOEA [None]
  - URTICARIA [None]
